FAERS Safety Report 7651723 (Version 7)
Quarter: 2013Q4

REPORT INFORMATION
  Report Type: Spontaneous
  Country: US (occurrence: US)
  Receive Date: 20101101
  Receipt Date: 20131226
  Transmission Date: 20140711
  Serious: Yes (Other)
  Sender: FDA-Public Use
  Company Number: US-BAYER-201038833NA

PATIENT
  Age: 18 Year
  Sex: Female
  Weight: 79.37 kg

DRUGS (10)
  1. OCELLA [Suspect]
     Indication: CONTRACEPTION
     Dosage: UNK UNK, QD
     Route: 048
     Dates: start: 200906, end: 201003
  2. YAZ [Suspect]
  3. YASMIN [Suspect]
     Route: 048
  4. NAPROXEN SODIUM + PSEUDOEPHEDRINE [Concomitant]
  5. HYDROCODONE/ACETAMINOPHEN [Concomitant]
     Dosage: 7.5/500 MG,
  6. PROMETHAZINE [Concomitant]
  7. SULFAMETHOXAZOLE/TRIMETHOPRIM [Concomitant]
  8. LORATADINE [Concomitant]
     Route: 048
  9. TERAZOL [Concomitant]
     Route: 067
  10. NEXIUM [Concomitant]
     Route: 048

REACTIONS (2)
  - Cholecystitis chronic [None]
  - Cholecystectomy [Unknown]
